FAERS Safety Report 18734936 (Version 1)
Quarter: 2021Q1

REPORT INFORMATION
  Report Type: Spontaneous
  Country: IQ (occurrence: IQ)
  Receive Date: 20210113
  Receipt Date: 20210113
  Transmission Date: 20210419
  Serious: Yes (Hospitalization, Other)
  Sender: FDA-Public Use
  Company Number: IQ-BAUSCH-BL-2020-039735

PATIENT
  Age: 64 Year
  Sex: Female

DRUGS (9)
  1. HYDROXYCHLOROQUINE [Concomitant]
     Active Substance: HYDROXYCHLOROQUINE
     Indication: EVIDENCE BASED TREATMENT
     Dates: start: 20200326, end: 20200328
  2. DIGOXIN. [Concomitant]
     Active Substance: DIGOXIN
     Indication: ATRIAL FIBRILLATION
     Dates: start: 202002, end: 20200328
  3. ATROPINE. [Suspect]
     Active Substance: ATROPINE
     Route: 065
     Dates: start: 202003
  4. ATROPINE. [Suspect]
     Active Substance: ATROPINE
     Indication: ATRIOVENTRICULAR BLOCK COMPLETE
     Dosage: UP TO
     Route: 065
     Dates: start: 202003
  5. WARFARIN [Concomitant]
     Active Substance: WARFARIN
     Indication: MITRAL VALVE PROLAPSE
     Dates: start: 20200226
  6. WARFARIN [Concomitant]
     Active Substance: WARFARIN
     Indication: MITRAL VALVE INCOMPETENCE
  7. AZITHROMYCIN ANHYDROUS. [Concomitant]
     Active Substance: AZITHROMYCIN ANHYDROUS
     Indication: EVIDENCE BASED TREATMENT
     Dates: start: 20200326, end: 20200328
  8. ATROPINE. [Suspect]
     Active Substance: ATROPINE
     Dosage: AS REQUIRED
     Route: 065
     Dates: start: 202003
  9. WARFARIN [Concomitant]
     Active Substance: WARFARIN
     Indication: ATRIAL FIBRILLATION

REACTIONS (1)
  - Confusional state [Recovered/Resolved]

NARRATIVE: CASE EVENT DATE: 202003
